FAERS Safety Report 9460240 (Version 1)
Quarter: 2013Q3

REPORT INFORMATION
  Report Type: Spontaneous
  Country: US (occurrence: US)
  Receive Date: 20130815
  Receipt Date: 20130815
  Transmission Date: 20140515
  Serious: Yes (Hospitalization, Other)
  Sender: FDA-Public Use
  Company Number: US-009507513-2009-197020-NL

PATIENT
  Sex: Female
  Weight: 108.86 kg

DRUGS (7)
  1. NUVARING [Suspect]
     Indication: MIGRAINE
     Dosage: CONTINUING: NO
     Route: 067
     Dates: start: 20021028, end: 20080605
  2. NUVARING [Suspect]
     Indication: CONTRACEPTION
  3. POTASSIUM IODIDE [Suspect]
     Indication: ERYTHEMA NODOSUM
     Route: 048
  4. MAXALT [Concomitant]
     Indication: PRODUCT USED FOR UNKNOWN INDICATION
     Dates: start: 2006
  5. MIDRIN [Concomitant]
     Indication: PRODUCT USED FOR UNKNOWN INDICATION
     Dates: start: 2000
  6. IBUPROFEN [Concomitant]
     Indication: PRODUCT USED FOR UNKNOWN INDICATION
     Dosage: UNK UNK, PRN
  7. ZOLOFT [Concomitant]
     Indication: DEPRESSION
     Dates: start: 20021028

REACTIONS (12)
  - Pulmonary embolism [Recovered/Resolved]
  - Erythema nodosum [Recovered/Resolved]
  - Epicondylitis [Unknown]
  - Dermatitis acneiform [Recovered/Resolved]
  - Off label use [Unknown]
  - Cervical polyp [Recovered/Resolved]
  - Cervical polypectomy [Recovered/Resolved]
  - Vaginal haemorrhage [Recovered/Resolved]
  - Hypoaesthesia [Unknown]
  - Acute stress disorder [Recovering/Resolving]
  - Depression [Recovering/Resolving]
  - Pyrexia [Unknown]
